FAERS Safety Report 5979614-3 (Version None)
Quarter: 2008Q4

REPORT INFORMATION
  Report Type: 
  Country: None (occurrence: None)
  Receive Date: 20081204
  Receipt Date: 20081124
  Transmission Date: 20090506
  Serious: Yes (Hospitalization)
  Sender: FDA-Public Use
  Company Number: BE-BAXTER-2008BH005660

PATIENT
  Age: 62 Year
  Sex: Male
  Weight: 90 kg

DRUGS (1)
  1. TISSUCOL/TISSEEL DUO STIM3 [Suspect]
     Indication: HERNIA REPAIR
     Route: 065
     Dates: start: 20070116, end: 20070116

REACTIONS (4)
  - CORONARY ARTERY OCCLUSION [None]
  - DEEP VEIN THROMBOSIS [None]
  - PULMONARY EMBOLISM [None]
  - RESPIRATORY DISTRESS [None]
